FAERS Safety Report 9682857 (Version 3)
Quarter: 2013Q4

REPORT INFORMATION
  Report Type: Report from Study
  Country: US (occurrence: US)
  Receive Date: 20131112
  Receipt Date: 20131226
  Transmission Date: 20140711
  Serious: Yes (Other)
  Sender: FDA-Public Use
  Company Number: US-ROCHE-1298285

PATIENT
  Age: 68 Year
  Sex: Male

DRUGS (8)
  1. AVASTIN [Suspect]
     Indication: DIABETIC RETINOPATHY
     Route: 065
     Dates: start: 20121030
  2. AVASTIN [Suspect]
     Indication: DIABETIC RETINAL OEDEMA
  3. AVASTIN [Suspect]
     Indication: CATARACT NUCLEAR
  4. AVASTIN [Suspect]
     Indication: CATARACT CORTICAL
  5. SIMVASTATIN [Concomitant]
  6. METFORMIN HYDROCHLORIDE [Concomitant]
  7. GLIPIZIDE [Concomitant]
  8. ENALAPRIL [Concomitant]

REACTIONS (4)
  - Macular oedema [Unknown]
  - Eye pain [Unknown]
  - Subretinal fluid [Unknown]
  - Vitreous adhesions [Unknown]
